FAERS Safety Report 8233111-3 (Version None)
Quarter: 2012Q1

REPORT INFORMATION
  Report Type: 
  Country: None (occurrence: None)
  Receive Date: 20120326
  Receipt Date: 20120316
  Transmission Date: 20120608
  Serious: No
  Sender: FDA-Public Use
  Company Number: US-BIOGENIDEC-2012BI000977

PATIENT
  Sex: Female

DRUGS (1)
  1. AVONEX [Suspect]
     Indication: MULTIPLE SCLEROSIS
     Route: 030
     Dates: start: 20110915

REACTIONS (7)
  - FEELING COLD [None]
  - TREMOR [None]
  - FATIGUE [None]
  - HEADACHE [None]
  - SKIN BURNING SENSATION [None]
  - PARAESTHESIA [None]
  - GENERAL PHYSICAL HEALTH DETERIORATION [None]
